FAERS Safety Report 4501519-5 (Version None)
Quarter: 2004Q4

REPORT INFORMATION
  Report Type: 
  Country: None (occurrence: None)
  Receive Date: 20041109
  Receipt Date: 20041102
  Transmission Date: 20050328
  Serious: Yes (Death)
  Sender: FDA-Public Use
  Company Number: 2004AP05587

PATIENT
  Age: 68 Year
  Sex: Female

DRUGS (1)
  1. DIPRIVAN [Suspect]
     Dosage: 3 ML /HR IV
     Route: 042
     Dates: start: 20041026, end: 20041027

REACTIONS (1)
  - DELAYED RECOVERY FROM ANAESTHESIA [None]
